FAERS Safety Report 6268262-6 (Version None)
Quarter: 2009Q3

REPORT INFORMATION
  Report Type: 
  Country: None (occurrence: None)
  Receive Date: 20090713
  Receipt Date: 20090713
  Transmission Date: 20100115
  Serious: Yes (Hospitalization)
  Sender: FDA-Public Use
  Company Number: None

PATIENT
  Age: 34 Year
  Sex: Female
  Weight: 70.3075 kg

DRUGS (1)
  1. SAVELLA [Suspect]
     Indication: ARTHRALGIA
     Dosage: UP TO 50 MG. 2X/DAY
     Dates: start: 20090628, end: 20090706

REACTIONS (5)
  - DYSURIA [None]
  - HYPERTENSION [None]
  - NAUSEA [None]
  - PALPITATIONS [None]
  - VOMITING [None]
